FAERS Safety Report 6425761-1 (Version None)
Quarter: 2009Q4

REPORT INFORMATION
  Report Type: 
  Country: None (occurrence: None)
  Receive Date: 20091029
  Receipt Date: 20091016
  Transmission Date: 20100525
  Serious: Yes (Death)
  Sender: FDA-Public Use
  Company Number: 2009AC000031

PATIENT
  Age: 61 Year
  Sex: Female
  Weight: 113.3993 kg

DRUGS (29)
  1. DIGOXIN [Suspect]
     Dosage: 0.125 MG;UNKNOWN;PO
     Route: 048
     Dates: start: 19970401
  2. MULTI-VITAMIN [Concomitant]
  3. LANTUS [Concomitant]
  4. LOPRESSOR [Concomitant]
  5. GLUCOPHAGE [Concomitant]
  6. LISINOPRIL [Concomitant]
  7. HALPRIN [Concomitant]
  8. INSULIN [Concomitant]
  9. TYLENOL [Concomitant]
  10. LASIX [Concomitant]
  11. NIPRIDE [Concomitant]
  12. DOPAMINE HCL [Concomitant]
  13. AMIODARONE [Concomitant]
  14. TRAMADOL HCL [Concomitant]
  15. DEMADEX [Concomitant]
  16. LOVASTAIN [Concomitant]
  17. METFORMIN HCL [Concomitant]
  18. PLAVIX [Concomitant]
  19. SYNTHROID [Concomitant]
  20. ZESTRIL [Concomitant]
  21. NITROGLYCERIN [Concomitant]
  22. GABAPENTIN [Concomitant]
  23. LYRICA [Concomitant]
  24. COUMADIN [Concomitant]
  25. ACCUPRIL [Concomitant]
  26. DEMADEX [Concomitant]
  27. TOPROL-XL [Concomitant]
  28. LOVASTATIN [Concomitant]
  29. TRAMADOL HCL [Concomitant]

REACTIONS (28)
  - ATELECTASIS [None]
  - ATRIAL FIBRILLATION [None]
  - BLOOD SODIUM DECREASED [None]
  - BLOOD UREA INCREASED [None]
  - CARDIAC ARREST [None]
  - CARDIAC FAILURE CONGESTIVE [None]
  - CARDIOMYOPATHY [None]
  - CAROTID ARTERY DISEASE [None]
  - CEREBROVASCULAR ACCIDENT [None]
  - CORONARY ARTERY DISEASE [None]
  - DIABETES MELLITUS [None]
  - HEART RATE INCREASED [None]
  - HYPERLIPIDAEMIA [None]
  - HYPERTENSION [None]
  - HYPONATRAEMIA [None]
  - HYPOTHYROIDISM [None]
  - HYSTERECTOMY [None]
  - INJURY [None]
  - ISCHAEMIC CARDIOMYOPATHY [None]
  - MITRAL VALVE INCOMPETENCE [None]
  - MYOCARDIAL ISCHAEMIA [None]
  - OBESITY [None]
  - OSTEOARTHRITIS [None]
  - PAIN [None]
  - PAIN IN EXTREMITY [None]
  - PLEURAL EFFUSION [None]
  - UNRESPONSIVE TO STIMULI [None]
  - VENTRICULAR FIBRILLATION [None]
